FAERS Safety Report 8238130-9 (Version None)
Quarter: 2012Q1

REPORT INFORMATION
  Report Type: 
  Country: None (occurrence: None)
  Receive Date: 20120327
  Receipt Date: 20120326
  Transmission Date: 20120608
  Serious: Yes (Life-Threatening, Hospitalization)
  Sender: FDA-Public Use
  Company Number: RU-BAYER-2012-028879

PATIENT
  Age: 43 Year
  Sex: Male

DRUGS (2)
  1. ASPIRIN [Suspect]
     Indication: BODY TEMPERATURE INCREASED
     Dosage: TOOK 20 TABLETS OF ASPIRIN IN 5 DAYS
     Route: 048
     Dates: start: 20110620
  2. CIPROFLOXACIN HCL [Suspect]
     Dosage: 3 DF, UNK
     Route: 048
     Dates: start: 20110624

REACTIONS (4)
  - RENAL FAILURE ACUTE [None]
  - PLEURAL EFFUSION [None]
  - URINE OUTPUT DECREASED [None]
  - ANURIA [None]
